FAERS Safety Report 22080236 (Version 1)
Quarter: 2023Q1

REPORT INFORMATION
  Report Type: Report from Study
  Country: US (occurrence: US)
  Receive Date: 20230309
  Receipt Date: 20230309
  Transmission Date: 20230417
  Serious: Yes (Hospitalization)
  Sender: FDA-Public Use
  Company Number: US-ABBVIE-4332356

PATIENT
  Sex: Female

DRUGS (1)
  1. SKYRIZI [Suspect]
     Active Substance: RISANKIZUMAB-RZAA
     Indication: Crohn^s disease
     Route: 058
     Dates: start: 20230202

REACTIONS (4)
  - Diarrhoea [Unknown]
  - Hospitalisation [Recovering/Resolving]
  - Vomiting [Unknown]
  - Norovirus test positive [Recovering/Resolving]

NARRATIVE: CASE EVENT DATE: 20230101
